FAERS Safety Report 10342923 (Version 4)
Quarter: 2015Q1

REPORT INFORMATION
  Report Type: Report from Study
  Country: JP (occurrence: JP)
  Receive Date: 20140725
  Receipt Date: 20150101
  Transmission Date: 20150720
  Serious: Yes (Hospitalization, Disabling, Other)
  Sender: FDA-Public Use
  Company Number: JP-AMGEN-JPNCT2014018723

PATIENT
  Age: 81 Year
  Sex: Female
  Weight: 42 kg

DRUGS (21)
  1. OMEPRAZOLE. [Concomitant]
     Active Substance: OMEPRAZOLE
     Dosage: UNK
     Route: 048
  2. MUCOSTA [Concomitant]
     Active Substance: REBAMIPIDE
     Dosage: UNK
     Route: 048
  3. LOXONIN [Concomitant]
     Active Substance: LOXOPROFEN SODIUM
     Dosage: UNK
     Route: 062
  4. SUVENYL [Concomitant]
     Active Substance: HYALURONATE SODIUM
     Dosage: UNK
     Route: 065
  5. XYLOCAINE [Concomitant]
     Active Substance: LIDOCAINE HYDROCHLORIDE
     Dosage: UNK
     Route: 065
  6. MOHRUS [Concomitant]
     Active Substance: KETOPROFEN
     Dosage: UNK
     Route: 062
  7. FERROMIA [Concomitant]
     Active Substance: FERROUS CITRATE
     Dosage: UNK
     Route: 048
     Dates: end: 20110225
  8. FLUITRAN [Concomitant]
     Active Substance: TRICHLORMETHIAZIDE
     Dosage: UNK
     Route: 048
  9. DARBEPOETIN ALFA - KHK [Suspect]
     Active Substance: DARBEPOETIN ALFA
     Indication: NEPHROGENIC ANAEMIA
     Dosage: 60 MUG, Q4WK
     Route: 058
     Dates: start: 20110225, end: 20130913
  10. MICARDIS [Concomitant]
     Active Substance: TELMISARTAN
     Dosage: UNK
     Route: 048
  11. TOWAZUREN [Concomitant]
     Dosage: UNK
     Route: 048
  12. CELECOX [Concomitant]
     Active Substance: CELECOXIB
     Dosage: UNK
     Route: 048
  13. LORFENAMIN [Concomitant]
     Active Substance: LOXOPROFEN
     Dosage: UNK, PRN
     Route: 048
  14. PREDNISOLONE. [Concomitant]
     Active Substance: PREDNISOLONE
     Dosage: 5 MG, QD
     Route: 048
     Dates: start: 20100312
  15. VOLTAREN [Concomitant]
     Active Substance: DICLOFENAC SODIUM
     Dosage: UNK
     Route: 054
  16. LASIX [Concomitant]
     Active Substance: FUROSEMIDE
     Dosage: UNK
     Route: 048
  17. AMLODIPINE                         /00972402/ [Concomitant]
     Active Substance: AMLODIPINE BESYLATE
     Dosage: UNK
     Route: 048
  18. NEO VITACAIN                       /01590801/ [Concomitant]
     Dosage: UNK
     Route: 065
  19. HIRUDOID                           /00723701/ [Concomitant]
     Dosage: UNK
     Route: 061
  20. LIMARMONE [Concomitant]
     Dosage: UNK
     Route: 048
  21. MECOBALAMIN [Concomitant]
     Active Substance: METHYLCOBALAMIN
     Dosage: UNK
     Route: 048

REACTIONS (16)
  - Hyperkalaemia [Recovering/Resolving]
  - Injection site extravasation [Recovered/Resolved]
  - Hyperkalaemia [Recovered/Resolved]
  - Diabetes mellitus [Not Recovered/Not Resolved]
  - Hyponatraemia [Recovering/Resolving]
  - Alanine aminotransferase increased [Recovering/Resolving]
  - Hypokalaemia [Recovering/Resolving]
  - Gamma-glutamyltransferase increased [Recovered/Resolved]
  - Conjunctivitis allergic [Not Recovered/Not Resolved]
  - Constipation [Recovering/Resolving]
  - Metabolic acidosis [Recovering/Resolving]
  - Malaise [Recovering/Resolving]
  - Aspartate aminotransferase increased [Recovering/Resolving]
  - Oedema [Recovering/Resolving]
  - Cerebral infarction [Recovered/Resolved with Sequelae]
  - Constipation [Not Recovered/Not Resolved]

NARRATIVE: CASE EVENT DATE: 20111014
